FAERS Safety Report 6866860-X (Version None)
Quarter: 2010Q2

REPORT INFORMATION
  Report Type: 
  Country: None (occurrence: None)
  Receive Date: 20100607
  Receipt Date: 20100330
  Transmission Date: 20101027
  Serious: No
  Sender: FDA-Public Use
  Company Number: 2010-00377

PATIENT
  Age: 50 Year
  Sex: Female
  Weight: 73.0291 kg

DRUGS (1)
  1. ZICAM INTENSE SINUS RELIEF [Suspect]
     Dosage: QD

REACTIONS (2)
  - ANOSMIA [None]
  - DIZZINESS [None]
